FAERS Safety Report 25688122 (Version 1)
Quarter: 2025Q3

REPORT INFORMATION
  Report Type: Spontaneous
  Country: US (occurrence: US)
  Receive Date: 20250818
  Receipt Date: 20250818
  Transmission Date: 20251021
  Serious: No
  Sender: BRISTOL-MYERS SQUIBB COMPANY
  Company Number: US-BRISTOL-MYERS SQUIBB COMPANY-2025-113632

PATIENT
  Age: 46 Year
  Sex: Female

DRUGS (3)
  1. ORENCIA [Suspect]
     Active Substance: ABATACEPT
     Indication: Arthropathy
     Route: 058
     Dates: start: 202506
  2. ORENCIA [Suspect]
     Active Substance: ABATACEPT
     Indication: Rheumatoid arthritis
  3. LEFLUNOMIDE [Interacting]
     Active Substance: LEFLUNOMIDE
     Indication: Product used for unknown indication

REACTIONS (2)
  - Therapy non-responder [Unknown]
  - Drug interaction [Unknown]
